FAERS Safety Report 21466918 (Version 2)
Quarter: 2022Q4

REPORT INFORMATION
  Report Type: Report from Study
  Country: US (occurrence: US)
  Receive Date: 20221017
  Receipt Date: 20221027
  Transmission Date: 20230113
  Serious: Yes (Hospitalization)
  Sender: FDA-Public Use
  Company Number: US-BoehringerIngelheim-2020-BI-052178

PATIENT
  Age: 56 Year
  Sex: Male
  Weight: 129 kg

DRUGS (3)
  1. OFEV [Suspect]
     Active Substance: NINTEDANIB
     Indication: Idiopathic pulmonary fibrosis
     Route: 048
     Dates: start: 20200401
  2. TYVASO [Suspect]
     Active Substance: TREPROSTINIL
     Indication: Product used for unknown indication
     Dates: start: 20220623, end: 20220908
  3. TYVASO [Suspect]
     Active Substance: TREPROSTINIL
     Dosage: DRY POWDER INHALER

REACTIONS (20)
  - Dyspnoea [Recovered/Resolved]
  - Fluid retention [Recovered/Resolved]
  - Chest pain [Recovered/Resolved]
  - Fluid retention [Unknown]
  - Nausea [Recovered/Resolved]
  - Productive cough [Recovered/Resolved]
  - Sputum discoloured [Recovered/Resolved]
  - Cough [Recovered/Resolved]
  - Dysphagia [Recovered/Resolved]
  - Weight increased [Unknown]
  - Headache [Recovered/Resolved]
  - Choking sensation [Unknown]
  - Myalgia [Recovered/Resolved]
  - Cough [Recovering/Resolving]
  - Localised infection [Unknown]
  - Dyspnoea [Unknown]
  - Tremor [Unknown]
  - Axillary pain [Unknown]
  - Restless legs syndrome [Unknown]
  - Drug intolerance [Unknown]

NARRATIVE: CASE EVENT DATE: 20210118
